FAERS Safety Report 23252332 (Version 1)
Quarter: 2023Q4

REPORT INFORMATION
  Report Type: Spontaneous
  Country: CA (occurrence: CA)
  Receive Date: 20231201
  Receipt Date: 20231201
  Transmission Date: 20240110
  Serious: Yes (Other)
  Sender: FDA-Public Use
  Company Number: CA-FreseniusKabi-FK202319448

PATIENT
  Age: 86 Year
  Sex: Male
  Weight: 85 kg

DRUGS (1)
  1. FENTANYL [Suspect]
     Active Substance: FENTANYL\FENTANYL CITRATE
     Indication: Pain
     Dosage: FORM: SOLUTION EPIDURAL

REACTIONS (3)
  - Depressed level of consciousness [Recovered/Resolved]
  - Oxygen therapy [Recovered/Resolved]
  - Tachypnoea [Recovered/Resolved]
